FAERS Safety Report 6191624-2 (Version None)
Quarter: 2009Q2

REPORT INFORMATION
  Report Type: 
  Country: None (occurrence: None)
  Receive Date: 20090515
  Receipt Date: 20090508
  Transmission Date: 20091009
  Serious: Yes (Other)
  Sender: FDA-Public Use
  Company Number: PHHY2009CA17803

PATIENT
  Sex: Male

DRUGS (1)
  1. SANDOSTATIN LAR [Suspect]
     Indication: PITUITARY TUMOUR
     Dosage: 30 MG, QMO
     Route: 030
     Dates: start: 20041217

REACTIONS (5)
  - ASTHENIA [None]
  - BLOOD GROWTH HORMONE INCREASED [None]
  - FACIAL PAIN [None]
  - GAIT DISTURBANCE [None]
  - PAIN [None]
